FAERS Safety Report 17351905 (Version 2)
Quarter: 2020Q1

REPORT INFORMATION
  Report Type: Spontaneous
  Country: CN (occurrence: CN)
  Receive Date: 20200130
  Receipt Date: 20200227
  Transmission Date: 20200409
  Serious: Yes (Other)
  Sender: FDA-Public Use
  Company Number: NVSC2020CN019796

PATIENT
  Sex: Male

DRUGS (1)
  1. CERITINIB [Suspect]
     Active Substance: CERITINIB
     Indication: LUNG NEOPLASM MALIGNANT
     Dosage: UNK
     Route: 048
     Dates: start: 2019

REACTIONS (6)
  - Angina pectoris [Unknown]
  - Cardiotoxicity [Unknown]
  - Chest discomfort [Unknown]
  - Dyspnoea [Unknown]
  - Insomnia [Unknown]
  - Alanine aminotransferase increased [Unknown]
